FAERS Safety Report 6092348-2 (Version None)
Quarter: 2009Q1

REPORT INFORMATION
  Report Type: 
  Country: None (occurrence: None)
  Receive Date: 20090225
  Receipt Date: 20090216
  Transmission Date: 20090719
  Serious: Yes (Hospitalization)
  Sender: FDA-Public Use
  Company Number: BR-ABBOTT-09P-020-0500901-00

PATIENT
  Sex: Male
  Weight: 51 kg

DRUGS (9)
  1. KALETRA [Suspect]
     Indication: HIV INFECTION
     Dosage: DURATION 7-10 DAYS: ROTATE WITH NORVIR
     Route: 048
  2. LAMIVUDINE [Concomitant]
     Indication: HIV INFECTION
     Route: 048
  3. ATAZANAVIR [Concomitant]
     Indication: HIV INFECTION
     Route: 048
  4. VIREAD [Concomitant]
     Indication: HIV INFECTION
     Route: 048
  5. ACYCLOVIR [Concomitant]
     Indication: HERPES VIRUS INFECTION
     Route: 048
  6. SULFAMETHOXAZOLE AND TRIMETHOPRIM [Concomitant]
     Indication: PNEUMONIA
     Dosage: SULFAMETHOXAZOLE (400 MG)/TRIMETHOPRIM (80 MG)
  7. SULFAMETHOXAZOLE AND TRIMETHOPRIM [Concomitant]
     Indication: PROPHYLAXIS
  8. NEOSALDINA [Concomitant]
     Indication: HEADACHE
  9. NORVIR [Concomitant]
     Indication: DRUG USE FOR UNKNOWN INDICATION
     Dosage: DURATION 7-10: DAYS ROTATE WITH KALETRA

REACTIONS (4)
  - BLISTER [None]
  - DIZZINESS [None]
  - ERYTHEMA [None]
  - PRURITUS [None]
